FAERS Safety Report 24285598 (Version 2)
Quarter: 2024Q3

REPORT INFORMATION
  Report Type: Spontaneous
  Country: DE (occurrence: DE)
  Receive Date: 20240905
  Receipt Date: 20240910
  Transmission Date: 20241017
  Serious: Yes (Hospitalization, Other)
  Sender: ABBVIE
  Company Number: DE-ASTELLAS-2021US022517

PATIENT
  Age: 68 Year
  Sex: Male

DRUGS (27)
  1. PREDNISOLONE [Suspect]
     Active Substance: PREDNISOLONE
     Indication: Stomatitis
     Dosage: 20 MG, ONCE DAILY (D86-100)
     Route: 048
  2. PREDNISOLONE [Suspect]
     Active Substance: PREDNISOLONE
     Indication: Dry eye
     Dosage: 90 MG, ONCE DAILY
     Route: 065
  3. PREDNISOLONE [Suspect]
     Active Substance: PREDNISOLONE
     Indication: Dermatitis
     Dosage: 80 MG, ONCE DAILY
     Route: 065
  4. PREDNISOLONE [Suspect]
     Active Substance: PREDNISOLONE
     Dosage: 5 MG, ONCE DAILY (D186-239)
     Route: 065
  5. PREDNISOLONE [Suspect]
     Active Substance: PREDNISOLONE
     Dosage: 40 MG, ONCE DAILY (D118-152)
     Route: 065
  6. PREDNISOLONE [Suspect]
     Active Substance: PREDNISOLONE
     Dosage: 70 MG, ONCE DAILY (D173-179)
     Route: 065
  7. PREDNISOLONE [Suspect]
     Active Substance: PREDNISOLONE
     Dosage: 60 MG, ONCE DAILY
     Route: 065
  8. PREDNISOLONE [Suspect]
     Active Substance: PREDNISOLONE
     Dosage: TIME INTERVAL: TOTAL: 180 MG, TOTAL DOSE  (D106)
     Route: 042
  9. PREDNISOLONE [Suspect]
     Active Substance: PREDNISOLONE
     Dosage: 10 MG, ONCE DAILY (D77)
     Route: 042
  10. PREDNISOLONE [Suspect]
     Active Substance: PREDNISOLONE
     Dosage: 100 MG, ONCE DAILY (D107)
     Route: 042
  11. PREDNISOLONE [Suspect]
     Active Substance: PREDNISOLONE
     Dosage: 100 MG, ONCE DAILY (D78)
     Route: 042
  12. PREDNISOLONE [Suspect]
     Active Substance: PREDNISOLONE
     Dosage: 30 MG, ONCE DAILY (D159)
     Route: 065
  13. PREDNISOLONE [Suspect]
     Active Substance: PREDNISOLONE
     Dosage: 100 MG, ONCE DAILY (D84)
     Route: 048
  14. PREDNISOLONE [Suspect]
     Active Substance: PREDNISOLONE
     Dosage: 50 MG, ONCE DAILY (D161)
     Route: 065
  15. PREDNISOLONE [Suspect]
     Active Substance: PREDNISOLONE
     Dosage: 100 MG, ONCE DAILY (D164)
     Route: 065
  16. CYCLOSPORINE [Suspect]
     Active Substance: CYCLOSPORINE
     Indication: Dry eye
     Dosage: UNK UNK, UNKNOWN FREQ.
     Route: 065
  17. TACROLIMUS [Suspect]
     Active Substance: TACROLIMUS
     Indication: Stomatitis
     Dosage: 1 MG, ONCE DAILY (D164)
     Route: 048
  18. POLATUZUMAB VEDOTIN [Concomitant]
     Active Substance: POLATUZUMAB VEDOTIN
     Indication: Follicular lymphoma stage IV
     Dosage: TIME INTERVAL: 1 CYCLICAL: 1.8 MG/KG, CYCLIC (D1 OF C1-6)
     Route: 065
     Dates: start: 2017
  19. ANAKINRA [Suspect]
     Active Substance: ANAKINRA
     Indication: Dermatitis
     Dosage: 100 MG, ONCE DAILY (D203)
     Route: 058
  20. OBINUTUZUMAB [Concomitant]
     Active Substance: OBINUTUZUMAB
     Indication: Follicular lymphoma stage IV
     Dosage: TIME INTERVAL: 1 CYCLICAL: 1000 MG, CYCLIC (D1, D8, D15 OF C1; D1 OF C2-6)
     Route: 065
     Dates: start: 2017
  21. VENETOCLAX [Concomitant]
     Active Substance: VENETOCLAX
     Indication: Follicular lymphoma stage IV
     Dosage: UNK UNK, UNKNOWN FREQ.
     Route: 065
     Dates: start: 2016
  22. BENDAMUSTINE HYDROCHLORIDE [Suspect]
     Active Substance: BENDAMUSTINE HYDROCHLORIDE
     Indication: Follicular lymphoma stage IV
     Dosage: TIME INTERVAL: 1 CYCLICAL: UNK UNK, CYCLIC
     Route: 042
     Dates: start: 2016
  23. BENDAMUSTINE HYDROCHLORIDE [Suspect]
     Active Substance: BENDAMUSTINE HYDROCHLORIDE
     Indication: Follicular lymphoma stage IV
     Dosage: TIME INTERVAL: 1 CYCLICAL: UNK UNK, CYCLIC
     Route: 042
     Dates: start: 2013
  24. INFLIXIMAB [Suspect]
     Active Substance: INFLIXIMAB
     Indication: Stomatitis
     Dosage: 425 MG, TWICE WEEKLY (D112)
     Route: 042
  25. ATEZOLIZUMAB [Concomitant]
     Active Substance: ATEZOLIZUMAB
     Indication: Follicular lymphoma stage IV
     Dosage: TIME INTERVAL: 1 CYCLICAL: 1200 MG, CYCLIC  (D1 OF C2-6)
     Route: 065
     Dates: start: 2017
  26. RITUXIMAB [Concomitant]
     Active Substance: RITUXIMAB
     Indication: Follicular lymphoma stage IV
     Dosage: UNK UNK, UNKNOWN FREQ.
     Route: 065
     Dates: start: 2013, end: 2015
  27. RITUXIMAB [Concomitant]
     Active Substance: RITUXIMAB
     Indication: Follicular lymphoma stage IV
     Dosage: UNK UNK, UNKNOWN FREQ.
     Route: 065
     Dates: start: 2016

REACTIONS (10)
  - Bacteraemia [Recovered/Resolved]
  - Viral infection [Recovered/Resolved]
  - Off label use [Unknown]
  - Immune system disorder [Unknown]
  - Off label use [Unknown]
  - Erysipelas [Recovered/Resolved]
  - Oral fungal infection [Unknown]
  - Immunosuppression [Unknown]
  - Oral fungal infection [Recovered/Resolved]
  - Bronchopulmonary aspergillosis [Recovered/Resolved]
